FAERS Safety Report 8787057 (Version 2)
Quarter: 2013Q4

REPORT INFORMATION
  Report Type: Spontaneous
  Country: US (occurrence: US)
  Receive Date: 20120914
  Receipt Date: 20131031
  Transmission Date: 20140711
  Serious: Yes (Life-Threatening, Hospitalization, Disabling, Other)
  Sender: FDA-Public Use
  Company Number: US-009507513-1209USA003709

PATIENT
  Age: 62 Year
  Sex: Female

DRUGS (3)
  1. ISENTRESS [Suspect]
     Route: 048
  2. INTELENCE [Suspect]
     Route: 048
  3. LAMIVUDINE [Concomitant]

REACTIONS (4)
  - Retroperitoneal fibrosis [Unknown]
  - Vomiting [Unknown]
  - Hydronephrosis [Unknown]
  - Abdominal pain [Unknown]
